FAERS Safety Report 5023856-0 (Version None)
Quarter: 2006Q2

REPORT INFORMATION
  Report Type: 
  Country: None (occurrence: None)
  Receive Date: 20060612
  Receipt Date: 20041101
  Transmission Date: 20061013
  Serious: Yes (Death, Life-Threatening, Hospitalization, Disabling, Other)
  Sender: FDA-Public Use
  Company Number: GB-NOVOPROD-240218

PATIENT
  Age: 55 Year
  Sex: Male
  Weight: 115 kg

DRUGS (21)
  1. ASPIRIN [Concomitant]
     Dosage: 75 MG, QD
     Route: 048
     Dates: start: 20041031, end: 20041103
  2. SIMVASTATIN [Concomitant]
     Dosage: 40 MG, UNK
     Route: 048
     Dates: start: 20041030, end: 20041102
  3. RAMIPRIL [Concomitant]
     Dosage: 10 MG, QD
     Route: 048
     Dates: start: 20041030, end: 20041102
  4. SENNA [Concomitant]
     Dosage: 15 MG, QD
     Route: 048
     Dates: start: 20041101, end: 20041102
  5. CLEXANE [Concomitant]
     Dosage: 240 MG, QD
     Route: 058
     Dates: start: 20041031, end: 20041103
  6. DICLOFENAC POTASSIUM [Concomitant]
     Dosage: 75 G, QD
     Route: 054
     Dates: start: 20041103, end: 20041103
  7. LANSOPRAZOLE [Concomitant]
     Dosage: 30 MG, QD
     Route: 048
     Dates: start: 20041103, end: 20041103
  8. TRAMADOL HCL [Concomitant]
     Dosage: 200 MG, QD
     Route: 048
     Dates: start: 20041102, end: 20041103
  9. METOCLOPRAMIDE [Concomitant]
     Dosage: 20 MG, QD
     Route: 042
     Dates: start: 20041103, end: 20041103
  10. ONDANSETRON HCL [Concomitant]
     Dosage: 4 MG, QD
     Route: 042
     Dates: start: 20041103, end: 20041103
  11. CYCLIZINE [Concomitant]
     Dosage: 50 MG, QD
     Route: 042
     Dates: start: 20041103, end: 20041104
  12. RANITIDINE [Concomitant]
     Dosage: 50 MG, QD
     Route: 042
     Dates: start: 20041103, end: 20041104
  13. NOVOSEVEN [Suspect]
     Indication: POST PROCEDURAL HAEMORRHAGE
     Dosage: 7.5 ML, QD
     Route: 042
     Dates: start: 20041029, end: 20041029
  14. ATENOLOL [Concomitant]
     Dosage: 25 MG, QD
     Route: 048
     Dates: start: 20041030, end: 20041103
  15. PARACETAMOL [Concomitant]
     Dosage: 4 G, QD
     Route: 048
     Dates: start: 20041030, end: 20041103
  16. FRUSEMIDE [Concomitant]
     Dosage: 40 MG, QD
     Route: 048
     Dates: start: 20041030, end: 20041103
  17. AMILORIDE [Concomitant]
     Dosage: 5 MG, QD
     Route: 048
     Dates: start: 20041030, end: 20041103
  18. ATROPINE [Concomitant]
     Dosage: 3 MG, QD
     Dates: start: 20041104, end: 20041104
  19. CLOPIDOGREL [Concomitant]
     Dosage: 300 MG, QD
     Route: 048
     Dates: start: 20041012, end: 20041013
  20. CLOPIDOGREL [Concomitant]
     Dosage: 75 MG, QD
     Route: 048
     Dates: start: 20041014, end: 20041019
  21. CLOPIDOGREL [Concomitant]
     Dosage: 75 MG, QD
     Route: 048
     Dates: start: 20041026, end: 20041027

REACTIONS (22)
  - ACIDOSIS [None]
  - ATRIAL FIBRILLATION [None]
  - BRADYCARDIA [None]
  - CARDIAC ARREST [None]
  - CARDIAC FAILURE ACUTE [None]
  - CARDIAC TAMPONADE [None]
  - CEREBRAL INFARCTION [None]
  - CEREBROVASCULAR ACCIDENT [None]
  - COLD SWEAT [None]
  - DISORIENTATION [None]
  - DYSPHAGIA [None]
  - DYSPNOEA [None]
  - ELECTROMECHANICAL DISSOCIATION [None]
  - GASTRIC ULCER [None]
  - HAEMOGLOBIN DECREASED [None]
  - HYPOTENSION [None]
  - MULTI-ORGAN FAILURE [None]
  - PAIN IN EXTREMITY [None]
  - SENSATION OF HEAVINESS [None]
  - SOMNOLENCE [None]
  - VENTRICULAR TACHYCARDIA [None]
  - VOMITING [None]
